FAERS Safety Report 22108636 (Version 1)
Quarter: 2023Q1

REPORT INFORMATION
  Report Type: Report from Study
  Country: DK (occurrence: DK)
  Receive Date: 20230317
  Receipt Date: 20230317
  Transmission Date: 20230418
  Serious: Yes (Hospitalization)
  Sender: FDA-Public Use
  Company Number: DK-KARYOPHARM-2023KPT000971

PATIENT
  Age: 71 Year
  Sex: Male

DRUGS (9)
  1. SELINEXOR [Suspect]
     Active Substance: SELINEXOR
     Indication: Plasma cell myeloma
     Dosage: 40 MG, ON DAY 2 TO DAY 22 OF A 28-DAY CYCLE
     Route: 048
     Dates: start: 20230304, end: 20230306
  2. VITAMINS [Concomitant]
     Active Substance: VITAMINS
     Indication: Product used for unknown indication
     Dosage: UNK
     Route: 065
     Dates: start: 20230221
  3. UNIKALK FORTE [Concomitant]
     Indication: Product used for unknown indication
     Dosage: 400MG-10MCG, (2 IN 1 D)
     Route: 065
     Dates: start: 20230222
  4. LIPISTAD [Concomitant]
     Indication: Product used for unknown indication
     Dosage: 20 MG
     Route: 065
     Dates: start: 20230118
  5. SULFAMETHOXAZOLE AND TRIMETHOPRIM [Concomitant]
     Active Substance: SULFAMETHOXAZOLE\TRIMETHOPRIM
     Indication: Product used for unknown indication
     Dosage: 400-80 MG (1 IN 1 D)
     Route: 065
     Dates: start: 20230207, end: 20230304
  6. ACYCLOVIR [Concomitant]
     Active Substance: ACYCLOVIR
     Indication: Product used for unknown indication
     Dosage: 800 MG, (1 IN 1 D)
     Route: 065
     Dates: start: 20230207
  7. ACETAMINOPHEN [Concomitant]
     Active Substance: ACETAMINOPHEN
     Indication: Pain
     Dosage: 1000 MG, (4 IN 1 D)
     Route: 065
     Dates: start: 20230118
  8. GABAPENTIN [Concomitant]
     Active Substance: GABAPENTIN
     Indication: Pain
     Dosage: 300 MG, (3 IN 1 D)
     Route: 065
     Dates: start: 20230206
  9. ASPIRIN [Concomitant]
     Active Substance: ASPIRIN
     Indication: Product used for unknown indication
     Dosage: 75 MG, (1 IN 1 D)
     Route: 065
     Dates: start: 20230207

REACTIONS (2)
  - Rash maculo-papular [Recovered/Resolved]
  - Oral fungal infection [Unknown]

NARRATIVE: CASE EVENT DATE: 20230304
